FAERS Safety Report 15920456 (Version 4)
Quarter: 2019Q2

REPORT INFORMATION
  Report Type: Report from Study
  Country: US (occurrence: US)
  Receive Date: 20190205
  Receipt Date: 20190628
  Transmission Date: 20190711
  Serious: Yes (Other)
  Sender: FDA-Public Use
  Company Number: US-PFIZER INC-2018504985

PATIENT
  Age: 59 Year
  Sex: Female

DRUGS (1)
  1. IBRANCE [Suspect]
     Active Substance: PALBOCICLIB
     Indication: BREAST CANCER FEMALE
     Dosage: 125 MG, CYCLIC (DAILY, 21 DAYS ON MEDICATION, 7 DAYS OFF TO MAKE UP A 28 DAY CYCLE)
     Route: 048
     Dates: start: 20181027

REACTIONS (15)
  - Oropharyngeal pain [Unknown]
  - Glossodynia [Unknown]
  - Haemorrhoids [Unknown]
  - Pain in extremity [Unknown]
  - Bone marrow failure [Unknown]
  - Pain [Not Recovered/Not Resolved]
  - Fatigue [Not Recovered/Not Resolved]
  - Back pain [Unknown]
  - Anxiety [Unknown]
  - Alopecia [Not Recovered/Not Resolved]
  - Skin laceration [Unknown]
  - Leukopenia [Not Recovered/Not Resolved]
  - Bleeding time prolonged [Unknown]
  - Micturition urgency [Unknown]
  - Headache [Unknown]

NARRATIVE: CASE EVENT DATE: 2018
